FAERS Safety Report 5508357-5 (Version None)
Quarter: 2007Q4

REPORT INFORMATION
  Report Type: 
  Country: None (occurrence: None)
  Receive Date: 20071106
  Receipt Date: 20071031
  Transmission Date: 20080405
  Serious: Yes (Other)
  Sender: FDA-Public Use
  Company Number: JP-MERCK-0711USA00548

PATIENT
  Age: 59 Year
  Sex: Female

DRUGS (7)
  1. FOSAMAX [Suspect]
     Indication: OSTEOPOROSIS
     Route: 048
     Dates: start: 20071030, end: 20071030
  2. ROCALTROL [Concomitant]
     Indication: OSTEOPOROSIS
     Route: 048
     Dates: start: 20070731
  3. ASPARA [Concomitant]
     Indication: OSTEOPOROSIS
     Route: 048
     Dates: start: 20070731
  4. CRESTOR [Concomitant]
     Indication: HYPERCHOLESTEROLAEMIA
     Route: 048
     Dates: start: 20070827
  5. SELBEX [Concomitant]
     Indication: GASTRITIS
     Route: 048
     Dates: start: 20070827
  6. GASMOTIN [Concomitant]
     Indication: GASTRITIS
     Route: 048
     Dates: start: 20070827
  7. MIGSIS [Concomitant]
     Indication: MIGRAINE
     Route: 048
     Dates: start: 20070601

REACTIONS (4)
  - BACK PAIN [None]
  - FLUSHING [None]
  - HEADACHE [None]
  - PYREXIA [None]
